FAERS Safety Report 4267117-6 (Version None)
Quarter: 2004Q1

REPORT INFORMATION
  Report Type: 
  Country: None (occurrence: None)
  Receive Date: 20040107
  Receipt Date: 20031223
  Transmission Date: 20041129
  Serious: Yes (Hospitalization, Other)
  Sender: FDA-Public Use
  Company Number: M03-341-148

PATIENT
  Age: 38 Year
  Sex: Male
  Weight: 76 kg

DRUGS (9)
  1. VELCADE [Suspect]
     Indication: MULTIPLE MYELOMA
     Dosage: 2.3 MG BIW: INTRAVENOUS
     Route: 042
     Dates: start: 20030610, end: 20030919
  2. PLAQUENIL [Suspect]
     Indication: GRAFT VERSUS HOST DISEASE
     Dosage: 400 MG; ORAL
     Route: 048
     Dates: start: 20030916
  3. ACYCLOVIR [Concomitant]
  4. CALCIUM CARBONATE [Concomitant]
  5. CO-TRIMOXAZOLE (BACTRIM) [Concomitant]
  6. FLUCONAZOLE [Concomitant]
  7. FOLIC ACID [Concomitant]
  8. MULTI-VITAMINS [Concomitant]
  9. PENICILIN VK (PHENOXYMETHYLPENICILLIN POTASSIUM) [Concomitant]

REACTIONS (8)
  - BLOOD CHOLESTEROL INCREASED [None]
  - BLOOD PRESSURE INCREASED [None]
  - GLOMERULONEPHRITIS MINIMAL LESION [None]
  - LIVER FUNCTION TEST ABNORMAL [None]
  - NEPHRITIS INTERSTITIAL [None]
  - NEPHROPATHY [None]
  - NEPHROTIC SYNDROME [None]
  - PITTING OEDEMA [None]
